FAERS Safety Report 16073341 (Version 4)
Quarter: 2019Q2

REPORT INFORMATION
  Report Type: Report from Study
  Country: US (occurrence: US)
  Receive Date: 20190314
  Receipt Date: 20190409
  Transmission Date: 20190711
  Serious: Yes (Hospitalization, Other)
  Sender: FDA-Public Use
  Company Number: US-GILEAD-2019-0396216

PATIENT
  Age: 72 Year
  Sex: Female

DRUGS (1)
  1. AMBRISENTAN [Suspect]
     Active Substance: AMBRISENTAN
     Indication: PULMONARY ARTERIAL HYPERTENSION
     Dosage: 10 MG, QD
     Route: 065
     Dates: start: 2016

REACTIONS (6)
  - Medical device removal [Recovered/Resolved]
  - Intentional dose omission [Not Recovered/Not Resolved]
  - Dyspnoea [Unknown]
  - Chest pain [Not Recovered/Not Resolved]
  - Chest discomfort [Not Recovered/Not Resolved]
  - Shoulder operation [Unknown]

NARRATIVE: CASE EVENT DATE: 20190304
